FAERS Safety Report 5775397-0 (Version None)
Quarter: 2008Q2

REPORT INFORMATION
  Report Type: 
  Country: None (occurrence: None)
  Receive Date: 20080617
  Receipt Date: 20080605
  Transmission Date: 20081010
  Serious: Yes (Life-Threatening, Hospitalization)
  Sender: FDA-Public Use
  Company Number: SE-GENENTECH-261770

PATIENT
  Sex: Female

DRUGS (5)
  1. LUCENTIS [Suspect]
     Indication: MACULAR DEGENERATION
     Dosage: 10 MG/ML, SINGLE
     Route: 031
     Dates: start: 20070608
  2. LUCENTIS [Suspect]
     Dosage: 10 MG/ML, SINGLE
     Route: 031
     Dates: start: 20070806
  3. LUCENTIS [Suspect]
     Dosage: 10 MG/ML, SINGLE
     Route: 031
     Dates: start: 20000906
  4. LUCENTIS [Suspect]
     Dosage: 10 MG/ML, SINGLE
     Route: 031
     Dates: start: 20071108
  5. LUCENTIS [Suspect]
     Dosage: 10 MG/ML, SINGLE
     Route: 031
     Dates: start: 20080304

REACTIONS (1)
  - CEREBROVASCULAR ACCIDENT [None]
